FAERS Safety Report 16381247 (Version 5)
Quarter: 2020Q3

REPORT INFORMATION
  Report Type: Report from Study
  Country: FR (occurrence: FR)
  Receive Date: 20190603
  Receipt Date: 20200819
  Transmission Date: 20201102
  Serious: Yes (Other)
  Sender: FDA-Public Use
  Company Number: FR-ROCHE-1927115

PATIENT
  Age: 63 Year
  Sex: Male
  Weight: 84 kg

DRUGS (12)
  1. IBRUTINIB [Suspect]
     Active Substance: IBRUTINIB
     Dosage: STUDY PART 2?LAST DOSE ON 19/JUL/2017
     Route: 048
     Dates: start: 20170109
  2. IBRUTINIB [Suspect]
     Active Substance: IBRUTINIB
     Indication: CHRONIC LYMPHOCYTIC LEUKAEMIA
     Dosage: C1D3?RECEIVED 6 CYCLES IN THE 1ST PART OF THE STUDY
     Route: 048
     Dates: start: 20160504
  3. ZELITREX [Concomitant]
     Active Substance: VALACYCLOVIR HYDROCHLORIDE
     Indication: PROPHYLAXIS
     Route: 048
     Dates: start: 201302
  4. OBINUTUZUMAB. [Suspect]
     Active Substance: OBINUTUZUMAB
     Indication: CHRONIC LYMPHOCYTIC LEUKAEMIA
     Dosage: CYCLE 1 DAY1 (C1D1)?RECEIVED 6 CYCLES IN THE 1ST PART OF THE STUDY?LAST ADMINISTRATION ON 03/APR/201
     Route: 041
     Dates: start: 20160502
  5. BACTRIM [Concomitant]
     Active Substance: SULFAMETHOXAZOLE\TRIMETHOPRIM
     Indication: PROPHYLAXIS
     Route: 048
     Dates: start: 201302
  6. OBINUTUZUMAB. [Suspect]
     Active Substance: OBINUTUZUMAB
     Dosage: CYCLE10 D1?LAST DOSE ON 03/APR/2017
     Route: 042
     Dates: start: 20170109
  7. LEDERFOLINE [Concomitant]
     Active Substance: LEUCOVORIN CALCIUM
     Indication: PROPHYLAXIS
     Dates: start: 201302
  8. ONDANSETRON [Concomitant]
     Active Substance: ONDANSETRON
     Indication: PROPHYLAXIS
     Route: 048
     Dates: start: 20170306
  9. FLUDARABINE [Concomitant]
     Active Substance: FLUDARABINE PHOSPHATE
     Dosage: D2?D3?D4 OF EACH CYCLE
     Route: 048
     Dates: start: 20170110, end: 20170406
  10. ENDOXAN [Concomitant]
     Active Substance: CYCLOPHOSPHAMIDE
     Dosage: D2?D3?D4 OF EACH CYCLE
     Route: 048
     Dates: start: 20170110, end: 20170406
  11. RHINOCORT AQUA [Concomitant]
     Active Substance: BUDESONIDE
     Indication: NASAL POLYPS
     Dates: start: 201301
  12. EMEND [Concomitant]
     Active Substance: APREPITANT
     Indication: PROPHYLAXIS
     Route: 048
     Dates: start: 20170306

REACTIONS (2)
  - Metastatic malignant melanoma [Not Recovered/Not Resolved]
  - Basal cell carcinoma [Recovered/Resolved]

NARRATIVE: CASE EVENT DATE: 201701
